FAERS Safety Report 7417176-4 (Version None)
Quarter: 2011Q2

REPORT INFORMATION
  Report Type: 
  Country: None (occurrence: None)
  Receive Date: 20110415
  Receipt Date: 20110309
  Transmission Date: 20111010
  Serious: Yes (Other)
  Sender: FDA-Public Use
  Company Number: US-BAYER-201023998NA

PATIENT
  Age: 18 Year
  Sex: Female
  Weight: 79.819 kg

DRUGS (14)
  1. XANAX [Concomitant]
     Dosage: UNK UNK, PRN
  2. PLAVIX [Concomitant]
  3. COLACE [Concomitant]
  4. YAZ [Suspect]
     Indication: PRODUCT USED FOR UNKNOWN INDICATION
     Route: 048
     Dates: start: 20040601, end: 20050615
  5. YASMIN [Suspect]
     Indication: PRODUCT USED FOR UNKNOWN INDICATION
     Route: 048
     Dates: start: 20040601, end: 20050615
  6. PERIDEX [Concomitant]
  7. CIPROFLOXACIN [Concomitant]
  8. PREVACID [Concomitant]
  9. ASPIRIN [Concomitant]
  10. PROTONIX [Concomitant]
  11. OCELLA [Suspect]
     Indication: PRODUCT USED FOR UNKNOWN INDICATION
     Route: 048
     Dates: start: 20040601, end: 20050615
  12. LEXAPRO [Concomitant]
  13. ACETAMINOPHEN [Concomitant]
     Dosage: UNK UNK, PRN
  14. DULCOLAX PICOSULFAT [Concomitant]
     Dosage: UNK UNK, PRN

REACTIONS (4)
  - ISCHAEMIC STROKE [None]
  - DEEP VEIN THROMBOSIS [None]
  - DEAFNESS UNILATERAL [None]
  - PARAESTHESIA [None]
